FAERS Safety Report 17205316 (Version 2)
Quarter: 2020Q1

REPORT INFORMATION
  Report Type: Report from Study
  Country: US (occurrence: US)
  Receive Date: 20191227
  Receipt Date: 20200224
  Transmission Date: 20200409
  Serious: Yes (Hospitalization, Other)
  Sender: FDA-Public Use
  Company Number: US-SA-2018SA041407

PATIENT
  Age: 58 Year
  Sex: Female

DRUGS (1)
  1. AGALSIDASE BETA [Suspect]
     Active Substance: AGALSIDASE BETA
     Indication: FABRY^S DISEASE
     Dosage: 75 MG, QOW
     Route: 042
     Dates: start: 20180208

REACTIONS (21)
  - Malaise [Recovering/Resolving]
  - Dyspnoea [Recovering/Resolving]
  - Pain [Recovering/Resolving]
  - Diarrhoea [Unknown]
  - Hiatus hernia [Unknown]
  - Kidney enlargement [Unknown]
  - Gastrooesophageal reflux disease [Unknown]
  - Endoscopy [Recovering/Resolving]
  - Myocardial necrosis marker increased [Recovering/Resolving]
  - Renal impairment [Unknown]
  - Gastrointestinal disorder [Unknown]
  - Pain [Unknown]
  - Renal disorder [Unknown]
  - Nausea [Unknown]
  - Migraine [Unknown]
  - Hernia pain [Recovered/Resolved]
  - Malaise [Unknown]
  - Nasopharyngitis [Unknown]
  - Abdominal pain upper [Unknown]
  - Irritable bowel syndrome [Unknown]
  - Rotator cuff syndrome [Unknown]

NARRATIVE: CASE EVENT DATE: 20180207
